FAERS Safety Report 5514642-3 (Version None)
Quarter: 2007Q4

REPORT INFORMATION
  Report Type: 
  Country: None (occurrence: None)
  Receive Date: 20071113
  Receipt Date: 20071108
  Transmission Date: 20080405
  Serious: Yes (Other)
  Sender: FDA-Public Use
  Company Number: CA-ASTRAZENECA-2007UW26028

PATIENT
  Age: 75 Year
  Sex: Female

DRUGS (13)
  1. XYLOCAINE [Suspect]
     Route: 047
  2. BACTIGRAS [Suspect]
     Route: 047
  3. D.O.R.C. VISION BLUE [Suspect]
     Route: 047
  4. FLURBIPROFEN [Suspect]
     Route: 047
  5. ZYMAR [Suspect]
     Dosage: ROUTE OF ADMINISTRATION: BLOCK + INFILTRATION
  6. PHENYLEPHRINE HYDROCHLORIDE OPTHALMIC 2.5% [Suspect]
     Route: 047
  7. PILOCARPINE [Suspect]
     Route: 047
  8. PROVIODINE [Suspect]
  9. PREDNISONE TAB [Suspect]
     Route: 047
  10. TETRACAINE POLYGYL STERILE OPHTHALMIC SOLUTION [Suspect]
     Route: 047
  11. TROPICAMIDE [Suspect]
     Route: 047
  12. VANCOMYCIN [Suspect]
     Route: 047
  13. ZOCOR [Concomitant]

REACTIONS (2)
  - EYE DISORDER [None]
  - INFLAMMATION [None]
